FAERS Safety Report 8995837 (Version 3)
Quarter: 2013Q1

REPORT INFORMATION
  Report Type: Spontaneous
  Country: JP (occurrence: JP)
  Receive Date: 20130103
  Receipt Date: 20130220
  Transmission Date: 20140127
  Serious: Yes (Hospitalization)
  Sender: FDA-Public Use
  Company Number: PHHY2012JP121186

PATIENT
  Age: 75 Year
  Sex: Male

DRUGS (2)
  1. VOLTAREN [Suspect]
     Dosage: 1 DF, UNK
     Route: 048
     Dates: start: 20121123, end: 20121124
  2. VOLTAREN [Suspect]
     Indication: BACK PAIN
     Dosage: 50 MG, DAILY
     Route: 054
     Dates: start: 20121125

REACTIONS (8)
  - Intestinal obstruction [Recovered/Resolved]
  - Urinary retention [Recovered/Resolved]
  - Urine output decreased [Recovered/Resolved]
  - Enterocolitis [Recovered/Resolved]
  - Fluid retention [Unknown]
  - Diarrhoea [Unknown]
  - Urine abnormality [Unknown]
  - Abdominal distension [Unknown]
